FAERS Safety Report 23423301 (Version 3)
Quarter: 2024Q2

REPORT INFORMATION
  Report Type: Report from Study
  Country: US (occurrence: US)
  Receive Date: 20240119
  Receipt Date: 20240424
  Transmission Date: 20240715
  Serious: Yes (Life-Threatening, Hospitalization, Other)
  Sender: FDA-Public Use
  Company Number: US-JAZZ PHARMACEUTICALS-2023-US-025187

PATIENT
  Sex: Female

DRUGS (2)
  1. EPIDIOLEX [Suspect]
     Active Substance: CANNABIDIOL
     Indication: Lennox-Gastaut syndrome
     Dosage: 1.2 MILLILITER, BID
     Route: 048
  2. EPIDIOLEX [Suspect]
     Active Substance: CANNABIDIOL
     Dosage: 1.3 MILLILITER, BID
     Route: 048
     Dates: start: 202403

REACTIONS (5)
  - Seizure [Unknown]
  - Seizure [Unknown]
  - Clavicle fracture [Unknown]
  - Product administration interrupted [Recovering/Resolving]
  - Product administration interrupted [Recovering/Resolving]
